FAERS Safety Report 10423657 (Version 1)
Quarter: 2014Q3

REPORT INFORMATION
  Report Type: Report from Study
  Country: US (occurrence: US)
  Receive Date: 20140902
  Receipt Date: 20140902
  Transmission Date: 20150326
  Serious: Yes (Other)
  Sender: FDA-Public Use
  Company Number: PHEH2014US017227

PATIENT
  Sex: Male

DRUGS (1)
  1. GILENYA [Suspect]
     Active Substance: FINGOLIMOD HYDROCHLORIDE
     Indication: MULTIPLE SCLEROSIS
     Dosage: 0.5 MG, DAILY
     Route: 048

REACTIONS (7)
  - Micturition urgency [Unknown]
  - Incontinence [Unknown]
  - Performance status decreased [Unknown]
  - Balance disorder [Unknown]
  - Psychotic disorder [Unknown]
  - Cervical spinal stenosis [Unknown]
  - Ataxia [Unknown]
